FAERS Safety Report 5587905-3 (Version None)
Quarter: 2008Q1

REPORT INFORMATION
  Report Type: 
  Country: None (occurrence: None)
  Receive Date: 20080108
  Receipt Date: 20080108
  Transmission Date: 20080703
  Serious: Yes (Life-Threatening)
  Sender: FDA-Public Use
  Company Number: None

PATIENT
  Age: 39 Year
  Sex: Male
  Weight: 100.6985 kg

DRUGS (1)
  1. AMOXICILLIN [Suspect]
     Dosage: 500MG PO
     Route: 048

REACTIONS (4)
  - OEDEMA PERIPHERAL [None]
  - PRURITUS GENERALISED [None]
  - RASH GENERALISED [None]
  - SKIN DISCOLOURATION [None]
